FAERS Safety Report 5962585-3 (Version None)
Quarter: 2008Q4

REPORT INFORMATION
  Report Type: 
  Country: None (occurrence: None)
  Receive Date: 20081121
  Receipt Date: 20081111
  Transmission Date: 20090506
  Serious: Yes (Death, Hospitalization, Other)
  Sender: FDA-Public Use
  Company Number: PT-PFIZER INC-2008096056

PATIENT
  Age: 64 Year
  Sex: Male

DRUGS (4)
  1. GABAPENTIN [Suspect]
     Indication: EPILEPSY
     Route: 048
  2. CARBAMAZEPINE [Interacting]
     Indication: EPILEPSY
  3. VALPROIC ACID [Interacting]
     Indication: EPILEPSY
  4. ANTICOAGULANTS [Concomitant]
     Route: 048

REACTIONS (11)
  - COLITIS ISCHAEMIC [None]
  - CONVULSION [None]
  - DRUG INTERACTION [None]
  - DRUG RASH WITH EOSINOPHILIA AND SYSTEMIC SYMPTOMS [None]
  - HYPONATRAEMIA [None]
  - HYPOTENSION [None]
  - LEUKOPENIA [None]
  - NORMOCHROMIC NORMOCYTIC ANAEMIA [None]
  - RENAL IMPAIRMENT [None]
  - SEPSIS [None]
  - THROMBOCYTOPENIA [None]
